FAERS Safety Report 8439182-3 (Version None)
Quarter: 2012Q2

REPORT INFORMATION
  Report Type: 
  Country: None (occurrence: None)
  Receive Date: 20120615
  Receipt Date: 20120608
  Transmission Date: 20120825
  Serious: Yes (Hospitalization, Other)
  Sender: FDA-Public Use
  Company Number: PHFR2012GB002912

PATIENT
  Sex: Male

DRUGS (13)
  1. CLOPIDOGREL [Concomitant]
     Dosage: 75 MG, UNK
     Route: 048
  2. SENNA-MINT WAF [Concomitant]
  3. MULTI-VITAMINS [Concomitant]
  4. LACTULOSE [Concomitant]
  5. ENSURE [Concomitant]
  6. CARBAMAZEPINE [Concomitant]
     Indication: MOOD ALTERED
     Dosage: 300 MG, BID
  7. LANSOPRAZOLE [Concomitant]
     Dosage: 30 MG, UNK
     Route: 048
  8. SIMVASTATIN [Concomitant]
     Dosage: 40 MG, UNK
     Route: 048
  9. ACETAMINOPHEN [Concomitant]
  10. CLOZARIL [Suspect]
     Indication: SCHIZOPHRENIA
     Dosage: 300 MG, BID
     Route: 048
     Dates: start: 20111117
  11. CLOZARIL [Suspect]
     Dosage: 300 MG, (250/300)
     Route: 048
     Dates: start: 20120514
  12. CARBAMAZEPINE [Concomitant]
     Dosage: 600 MG, UNK
     Route: 048
  13. CITALOPRAM HYDROBROMIDE [Concomitant]
     Indication: DEPRESSED MOOD
     Dosage: 20 MG, UNK
     Route: 048

REACTIONS (7)
  - GRAND MAL CONVULSION [None]
  - ANTIPSYCHOTIC DRUG LEVEL BELOW THERAPEUTIC [None]
  - TRANSIENT ISCHAEMIC ATTACK [None]
  - CEREBRAL ISCHAEMIA [None]
  - DRUG INEFFECTIVE [None]
  - OSTEOPOROSIS [None]
  - GENERAL PHYSICAL HEALTH DETERIORATION [None]
